FAERS Safety Report 10143378 (Version 1)
Quarter: 2014Q2

REPORT INFORMATION
  Report Type: Other
  Country: DK (occurrence: CA)
  Receive Date: 20140430
  Receipt Date: 20140430
  Transmission Date: 20141212
  Serious: Yes (Hospitalization, Other)
  Sender: FDA-Public Use
  Company Number: CA-FRI-1000066881

PATIENT
  Age: 6 Month
  Sex: Female
  Weight: 6.5 kg

DRUGS (2)
  1. ESCITALOPRAM [Suspect]
     Dosage: 10 MG
     Route: 063
  2. BUPROPION XL [Suspect]
     Dosage: 150 MG
     Route: 063

REACTIONS (3)
  - Tonic convulsion [Recovered/Resolved]
  - Vomiting [Recovered/Resolved]
  - Drug interaction [Recovered/Resolved]
